FAERS Safety Report 7827737-6 (Version None)
Quarter: 2011Q4

REPORT INFORMATION
  Report Type: 
  Country: None (occurrence: None)
  Receive Date: 20111020
  Receipt Date: 20111018
  Transmission Date: 20120403
  Serious: Yes (Death)
  Sender: FDA-Public Use
  Company Number: DE-SANOFI-AVENTIS-2011SA061554

PATIENT
  Age: 67 Year
  Sex: Male
  Weight: 96 kg

DRUGS (8)
  1. MULTAQ [Suspect]
     Indication: ATRIAL FIBRILLATION
     Route: 048
     Dates: start: 20110322, end: 20110328
  2. METOPROLOL SUCCINATE [Concomitant]
     Route: 048
  3. ALL OTHER THERAPEUTIC PRODUCTS [Concomitant]
     Indication: GLAUCOMA
     Route: 061
  4. METOPROLOL SUCCINATE [Concomitant]
     Indication: ATRIAL FIBRILLATION
     Route: 048
  5. MARCUMAR [Concomitant]
     Indication: ATRIAL FIBRILLATION
     Route: 048
     Dates: start: 20110301
  6. ENOXAPARIN SODIUM [Concomitant]
     Route: 058
     Dates: start: 20110301, end: 20110326
  7. ENOXAPARIN SODIUM [Concomitant]
     Route: 058
     Dates: start: 20110327, end: 20110327
  8. TORSEMIDE [Concomitant]
     Route: 048
     Dates: end: 20110301

REACTIONS (1)
  - SUDDEN CARDIAC DEATH [None]
